FAERS Safety Report 18141879 (Version 1)
Quarter: 2020Q3

REPORT INFORMATION
  Report Type: Spontaneous
  Country: US (occurrence: US)
  Receive Date: 20200813
  Receipt Date: 20200813
  Transmission Date: 20201103
  Serious: Yes (Hospitalization, Other)
  Sender: FDA-Public Use
  Company Number: US-CIPLA LTD.-2020US05477

PATIENT

DRUGS (8)
  1. PREDNISONE. [Interacting]
     Active Substance: PREDNISONE
     Indication: PRODUCT USED FOR UNKNOWN INDICATION
     Dosage: 60 MILLIGRAM, QD (3 TABLETS ORALLY EVERY MORNING), FOR 28 DAYS
     Route: 048
  2. GABAPENTIN. [Interacting]
     Active Substance: GABAPENTIN
     Dosage: 600 MILLIGRAM, QD (TWO CAPSULES BY MOUTH DAILY AT BEDTIME)
     Route: 048
  3. FOLIC ACID. [Concomitant]
     Active Substance: FOLIC ACID
     Indication: PRODUCT USED FOR UNKNOWN INDICATION
     Dosage: 1 MILLIGRAM, QD (1 MG TABLET, ONE BY MOUTH DAILY)
     Route: 048
  4. LORAZEPAM. [Concomitant]
     Active Substance: LORAZEPAM
     Indication: ALCOHOL WITHDRAWAL SYNDROME
     Dosage: 1 MILLIGRAM, SINGLE (1 MG, ONCE)
     Route: 065
  5. GABAPENTIN. [Interacting]
     Active Substance: GABAPENTIN
     Dosage: 300 MILLIGRAM, BID (ONE CAPSULE BY MOUTH TWICE A DAY)
     Route: 048
  6. MULTIVITAMIN IRON [Concomitant]
     Indication: PRODUCT USED FOR UNKNOWN INDICATION
     Dosage: 1 DOSAGE FORM, QD (ONE TABLET BY MOUTH DAILY)
     Route: 048
  7. GABAPENTIN. [Suspect]
     Active Substance: GABAPENTIN
     Indication: ALCOHOL WITHDRAWAL SYNDROME
     Dosage: 300 MILLIGRAM, TID (ONE CAPSULE BY MOUTH 3 TIMES)
     Route: 048
  8. CLONIDINE. [Interacting]
     Active Substance: CLONIDINE
     Indication: ALCOHOL WITHDRAWAL SYNDROME
     Dosage: 0.1 MILLIGRAM, QD (ONE TO BE REMOVED IN 3 DAYS, OTHER PATCH ON THE 4TH DAY)
     Route: 061

REACTIONS (7)
  - Suicidal ideation [Unknown]
  - Cardiac arrest [Unknown]
  - Off label use [Unknown]
  - Suicide attempt [Unknown]
  - Pulseless electrical activity [Unknown]
  - Product use in unapproved indication [Unknown]
  - Drug interaction [Unknown]
